FAERS Safety Report 5287550-3 (Version None)
Quarter: 2007Q1

REPORT INFORMATION
  Report Type: 
  Country: None (occurrence: None)
  Receive Date: 20070126
  Receipt Date: 20061103
  Transmission Date: 20070707
  Serious: No
  Sender: FDA-Public Use
  Company Number: 2006CT000895

PATIENT
  Age: 43 Year
  Sex: Female
  Weight: 62 kg

DRUGS (9)
  1. VENTAVIS [Suspect]
     Indication: PULMONARY HYPERTENSION
     Dosage: 5 UG;6XD;INH
     Route: 055
     Dates: start: 20060714, end: 20061103
  2. PREDNISONE TAB [Concomitant]
  3. OSCAL 500-D [Concomitant]
  4. THEOPHYLLINE [Concomitant]
  5. ALBUTEROL [Concomitant]
  6. ATROVENT [Concomitant]
  7. HYDROCHLOROTHIAZIDE [Concomitant]
  8. OXYGEN [Concomitant]
  9. TRACLEER [Concomitant]

REACTIONS (2)
  - BRONCHIECTASIS [None]
  - FATIGUE [None]
